FAERS Safety Report 11297941 (Version 1)
Quarter: 2015Q3

REPORT INFORMATION
  Report Type: Spontaneous
  Country: US (occurrence: US)
  Receive Date: 20150722
  Receipt Date: 20150722
  Transmission Date: 20151125
  Serious: No
  Sender: FDA-Public Use
  Company Number: US-ELI_LILLY_AND_COMPANY-US201011007576

PATIENT
  Sex: Female

DRUGS (8)
  1. HUMATROPE [Suspect]
     Active Substance: SOMATROPIN
     Dosage: 2.1 MG, DAILY (1/D) (IN THE EVENING)
     Route: 065
     Dates: start: 20100817
  2. HUMATROPE [Suspect]
     Active Substance: SOMATROPIN
     Dosage: 1 D/F, DAILY (1/D)
     Route: 065
  3. HUMATROPE [Suspect]
     Active Substance: SOMATROPIN
     Dosage: 1.5 D/F, DAILY (1/D)
     Route: 065
  4. HUMATROPE [Suspect]
     Active Substance: SOMATROPIN
     Dosage: 1 D/F, DAILY (1/D)
     Route: 065
  5. HUMATROPE [Suspect]
     Active Substance: SOMATROPIN
     Dosage: 2 D/F, DAILY (1/D)
     Route: 065
  6. HUMATROPE [Suspect]
     Active Substance: SOMATROPIN
     Dosage: 0.5 D/F, DAILY (1/D)
     Route: 065
  7. HUMATROPE [Suspect]
     Active Substance: SOMATROPIN
     Dosage: 1.9 D/F, DAILY (1/D)
     Route: 065
  8. HUMATROPE [Suspect]
     Active Substance: SOMATROPIN
     Dosage: 2.1 D/F, DAILY (1/D)
     Route: 065

REACTIONS (4)
  - Arthralgia [Unknown]
  - Migraine [Unknown]
  - Acne [Unknown]
  - Headache [Unknown]
